FAERS Safety Report 21936471 (Version 1)
Quarter: 2023Q1

REPORT INFORMATION
  Report Type: Report from Study
  Country: US (occurrence: US)
  Receive Date: 20230201
  Receipt Date: 20230201
  Transmission Date: 20230417
  Serious: No
  Sender: FDA-Public Use
  Company Number: US-INCYTE CORPORATION-2021IN000546

PATIENT

DRUGS (2)
  1. PEMIGATINIB [Suspect]
     Active Substance: PEMIGATINIB
     Indication: Cholangiocarcinoma
     Dosage: UNK
     Route: 065
     Dates: start: 2020
  2. PEMIGATINIB [Suspect]
     Active Substance: PEMIGATINIB
     Dosage: 13.5 MILLIGRAM, QD (14 DAYS OF A 21 DAY CYCLE), THEN 7 DAYS OFF
     Route: 048
     Dates: start: 20210125

REACTIONS (7)
  - Abdominal discomfort [Unknown]
  - Abdominal distension [Unknown]
  - Muscular weakness [Unknown]
  - Platelet count increased [Unknown]
  - Blood phosphorus increased [Recovered/Resolved]
  - Constipation [Recovered/Resolved]
  - Alopecia [Unknown]
